FAERS Safety Report 25996083 (Version 2)
Quarter: 2025Q4

REPORT INFORMATION
  Report Type: Report from Study
  Country: US (occurrence: US)
  Receive Date: 20251104
  Receipt Date: 20251121
  Transmission Date: 20260117
  Serious: Yes (Hospitalization, Other)
  Sender: JAZZ
  Company Number: US-JAZZ PHARMACEUTICALS-2025-US-024029

PATIENT
  Sex: Male
  Weight: 17.6 kg

DRUGS (3)
  1. EPIDIOLEX [Suspect]
     Active Substance: CANNABIDIOL
     Indication: Epilepsy
     Dosage: 1.7 MILLILITER, BID (170 MILLIGRAMS IN THE MORNING AND 170 MILLIGRAMS BEFORE BEDTIME)
  2. EPIDIOLEX [Suspect]
     Active Substance: CANNABIDIOL
     Indication: Myoclonic epilepsy
  3. CLOBAZAM [Concomitant]
     Active Substance: CLOBAZAM
     Indication: Product used for unknown indication
     Dosage: UNK

REACTIONS (3)
  - Generalised tonic-clonic seizure [Unknown]
  - Product container issue [Unknown]
  - Product administration interrupted [Unknown]
